FAERS Safety Report 18363354 (Version 3)
Quarter: 2020Q4

REPORT INFORMATION
  Report Type: Report from Study
  Country: JP (occurrence: JP)
  Receive Date: 20201008
  Receipt Date: 20201119
  Transmission Date: 20210114
  Serious: Yes (Other)
  Sender: FDA-Public Use
  Company Number: JP-BEH-2020123327

PATIENT
  Age: 13 Year
  Sex: Male
  Weight: 36 kg

DRUGS (26)
  1. IDELVION [Suspect]
     Active Substance: COAGULATION FACTOR IX RECOMBINANT HUMAN
     Dosage: 1500 INTERNATIONAL UNIT, BIW
     Route: 042
     Dates: start: 20200831, end: 20200902
  2. IDELVION [Suspect]
     Active Substance: COAGULATION FACTOR IX RECOMBINANT HUMAN
     Dosage: 1500 INTERNATIONAL UNIT, TOT
     Route: 042
     Dates: start: 20200907, end: 20200907
  3. IDELVION [Suspect]
     Active Substance: COAGULATION FACTOR IX RECOMBINANT HUMAN
     Indication: MUSCLE HAEMORRHAGE
     Dosage: 1500 INTERNATIONAL UNIT, BIW
     Route: 042
     Dates: start: 20200914, end: 20200918
  4. IDELVION [Suspect]
     Active Substance: COAGULATION FACTOR IX RECOMBINANT HUMAN
     Dosage: 1500 INTERNATIONAL UNIT, TOT
     Route: 042
     Dates: start: 20200914, end: 20200914
  5. IDELVION [Suspect]
     Active Substance: COAGULATION FACTOR IX RECOMBINANT HUMAN
     Dosage: 1500 INTERNATIONAL UNIT, TOT
     Route: 042
     Dates: start: 20200923, end: 20200923
  6. IDELVION [Suspect]
     Active Substance: COAGULATION FACTOR IX RECOMBINANT HUMAN
     Dosage: 2000 INTERNATIONAL UNIT, TOT
     Route: 042
     Dates: start: 202011
  7. IDELVION [Suspect]
     Active Substance: COAGULATION FACTOR IX RECOMBINANT HUMAN
     Indication: PROPHYLAXIS
     Dosage: 1500 INTERNATIONAL UNIT, TOT
     Route: 042
     Dates: start: 20200817, end: 20200817
  8. IDELVION [Suspect]
     Active Substance: COAGULATION FACTOR IX RECOMBINANT HUMAN
     Indication: PROPHYLAXIS
     Dosage: 1500 INTERNATIONAL UNIT, TOT
     Route: 042
     Dates: start: 20200817, end: 20200817
  9. IDELVION [Suspect]
     Active Substance: COAGULATION FACTOR IX RECOMBINANT HUMAN
     Indication: JOINT MICROHAEMORRHAGE
     Dosage: 1500 INTERNATIONAL UNIT, TOT
     Route: 042
     Dates: start: 20200824, end: 20200824
  10. IDELVION [Suspect]
     Active Substance: COAGULATION FACTOR IX RECOMBINANT HUMAN
     Indication: JOINT MICROHAEMORRHAGE
     Dosage: 1500 INTERNATIONAL UNIT, TOT
     Route: 042
     Dates: start: 20200824, end: 20200824
  11. IDELVION [Suspect]
     Active Substance: COAGULATION FACTOR IX RECOMBINANT HUMAN
     Dosage: 500 INTERNATIONAL UNIT, TOT
     Route: 042
     Dates: start: 20200916, end: 20200916
  12. IDELVION [Suspect]
     Active Substance: COAGULATION FACTOR IX RECOMBINANT HUMAN
     Dosage: 1000 INTERNATIONAL UNIT, TOT
     Route: 042
     Dates: start: 20200916, end: 20200916
  13. IDELVION [Suspect]
     Active Substance: COAGULATION FACTOR IX RECOMBINANT HUMAN
     Dosage: 2000 INTERNATIONAL UNIT, TOT
     Route: 042
     Dates: start: 202011
  14. IDELVION [Suspect]
     Active Substance: COAGULATION FACTOR IX RECOMBINANT HUMAN
     Dosage: 1500 INTERNATIONAL UNIT, TOT
     Route: 042
     Dates: start: 20200907, end: 20200907
  15. IDELVION [Suspect]
     Active Substance: COAGULATION FACTOR IX RECOMBINANT HUMAN
     Dosage: 1500 INTERNATIONAL UNIT, BIW
     Route: 042
     Dates: start: 20200831, end: 20200902
  16. IDELVION [Suspect]
     Active Substance: COAGULATION FACTOR IX RECOMBINANT HUMAN
     Dosage: 500 INTERNATIONAL UNIT, TOT
     Route: 042
     Dates: start: 20200916, end: 20200916
  17. IDELVION [Suspect]
     Active Substance: COAGULATION FACTOR IX RECOMBINANT HUMAN
     Indication: MUSCLE HAEMORRHAGE
     Dosage: 1500 INTERNATIONAL UNIT, BIW
     Route: 042
     Dates: start: 20200914, end: 20200918
  18. IDELVION [Suspect]
     Active Substance: COAGULATION FACTOR IX RECOMBINANT HUMAN
     Dosage: 1500 INTERNATIONAL UNIT, TOT
     Route: 042
     Dates: start: 20200907, end: 20200907
  19. IDELVION [Suspect]
     Active Substance: COAGULATION FACTOR IX RECOMBINANT HUMAN
     Dosage: 1500 INTERNATIONAL UNIT, TOT
     Route: 042
     Dates: start: 20200914, end: 20200914
  20. IDELVION [Suspect]
     Active Substance: COAGULATION FACTOR IX RECOMBINANT HUMAN
     Dosage: 1000 INTERNATIONAL UNIT, TOT
     Route: 042
     Dates: start: 20200916, end: 20200916
  21. IDELVION [Suspect]
     Active Substance: COAGULATION FACTOR IX RECOMBINANT HUMAN
     Dosage: 1500 INTERNATIONAL UNIT, TOT
     Route: 042
     Dates: start: 20200928, end: 20200928
  22. IDELVION [Suspect]
     Active Substance: COAGULATION FACTOR IX RECOMBINANT HUMAN
     Dosage: 1500 INTERNATIONAL UNIT, TOT
     Route: 042
     Dates: start: 20200928, end: 20200928
  23. IDELVION [Suspect]
     Active Substance: COAGULATION FACTOR IX RECOMBINANT HUMAN
     Dosage: 1500 INTERNATIONAL UNIT, TOT
     Route: 042
     Dates: start: 20200907, end: 20200907
  24. IDELVION [Suspect]
     Active Substance: COAGULATION FACTOR IX RECOMBINANT HUMAN
     Dosage: 1500 INTERNATIONAL UNIT, TOT
     Route: 042
     Dates: start: 20200923, end: 20200923
  25. IDELVION [Suspect]
     Active Substance: COAGULATION FACTOR IX RECOMBINANT HUMAN
     Dosage: 1500 INTERNATIONAL UNIT, TOT
     Route: 042
     Dates: start: 20201007, end: 20201007
  26. IDELVION [Suspect]
     Active Substance: COAGULATION FACTOR IX RECOMBINANT HUMAN
     Dosage: 1500 INTERNATIONAL UNIT, TOT
     Route: 042
     Dates: start: 20201007, end: 20201007

REACTIONS (7)
  - Fall [Unknown]
  - Haemarthrosis [Recovered/Resolved]
  - Pain [Recovered/Resolved]
  - Gait disturbance [Recovered/Resolved]
  - Haemarthrosis [Unknown]
  - Pain in extremity [Recovered/Resolved]
  - Muscle haemorrhage [Recovered/Resolved]

NARRATIVE: CASE EVENT DATE: 20200831
